FAERS Safety Report 6814057-1 (Version None)
Quarter: 2010Q3

REPORT INFORMATION
  Report Type: 
  Country: None (occurrence: None)
  Receive Date: 20100702
  Receipt Date: 20100622
  Transmission Date: 20110219
  Serious: Yes (Hospitalization)
  Sender: FDA-Public Use
  Company Number: GB-JNJFOC-20070800578

PATIENT
  Age: 20 Year
  Sex: Female
  Weight: 40 kg

DRUGS (4)
  1. IBUPROFEN [Suspect]
     Indication: TOOTHACHE
  2. ACETAMINOPHEN [Suspect]
  3. ACETAMINOPHEN [Suspect]
     Indication: TOOTHACHE
  4. ACETAMINOPHEN AND CODEINE PHOSPHATE [Suspect]
     Indication: TOOTHACHE

REACTIONS (3)
  - ACCIDENTAL OVERDOSE [None]
  - DRUG DISPENSING ERROR [None]
  - DRUG TOXICITY [None]
